FAERS Safety Report 12313982 (Version 2)
Quarter: 2016Q2

REPORT INFORMATION
  Report Type: Spontaneous
  Country: US (occurrence: US)
  Receive Date: 20160428
  Receipt Date: 20160606
  Transmission Date: 20160815
  Serious: Yes (Other)
  Sender: FDA-Public Use
  Company Number: US-JNJFOC-20160418871

PATIENT
  Sex: Female

DRUGS (1)
  1. TOPAMAX [Suspect]
     Active Substance: TOPIRAMATE
     Indication: PRODUCT USED FOR UNKNOWN INDICATION
     Route: 048

REACTIONS (11)
  - Drug effect decreased [Unknown]
  - Vulvovaginal pruritus [Unknown]
  - Alopecia [Not Recovered/Not Resolved]
  - Visual impairment [Unknown]
  - Intraocular pressure increased [Unknown]
  - Exophthalmos [Unknown]
  - Abnormal sensation in eye [Unknown]
  - Breast tenderness [Unknown]
  - Tinea cruris [Unknown]
  - Pruritus [Unknown]
  - Nasopharyngitis [Unknown]
